FAERS Safety Report 7705563-6 (Version None)
Quarter: 2011Q3

REPORT INFORMATION
  Report Type: 
  Country: None (occurrence: None)
  Receive Date: 20110824
  Receipt Date: 20110818
  Transmission Date: 20111222
  Serious: Yes (Other)
  Sender: FDA-Public Use
  Company Number: US-SANOFI-AVENTIS-2011SA053524

PATIENT
  Age: 59 Year
  Sex: Male
  Weight: 177 kg

DRUGS (12)
  1. LYRICA [Suspect]
     Route: 048
     Dates: start: 20100101
  2. LISINOPRIL [Concomitant]
     Dates: start: 20010101
  3. SIMAVASTATIN [Concomitant]
     Dates: start: 20090801
  4. COLCHICINE [Suspect]
     Indication: PAIN IN EXTREMITY
     Route: 065
  5. LYRICA [Suspect]
     Route: 048
     Dates: start: 20090201, end: 20100101
  6. ALLOPURINOL [Suspect]
     Indication: PAIN IN EXTREMITY
     Route: 065
     Dates: start: 20090101
  7. HYDROCHLOROTHIAZIDE [Concomitant]
     Dates: start: 20040902
  8. LASIX [Suspect]
     Route: 048
     Dates: start: 20040101
  9. NOVOLIN 70/30 [Concomitant]
     Dosage: 70/30 260MG DAILY
     Dates: start: 19990101
  10. METOPROLOL [Concomitant]
     Dates: start: 20010101
  11. AMLODIPINE [Concomitant]
     Dates: end: 20090902
  12. ACETYLSALICYLIC ACID SRT [Concomitant]

REACTIONS (6)
  - WEIGHT INCREASED [None]
  - SOMNOLENCE [None]
  - CARPAL TUNNEL SYNDROME [None]
  - INSOMNIA [None]
  - FLUID RETENTION [None]
  - FATIGUE [None]
